FAERS Safety Report 8537047-X (Version None)
Quarter: 2012Q3

REPORT INFORMATION
  Report Type: 
  Country: None (occurrence: None)
  Receive Date: 20120725
  Receipt Date: 20120720
  Transmission Date: 20120928
  Serious: Yes (Hospitalization, Other)
  Sender: FDA-Public Use
  Company Number: DE-ABBOTT-10P-062-0657063-00

PATIENT
  Sex: Male

DRUGS (1)
  1. HUMIRA [Suspect]
     Indication: ANKYLOSING SPONDYLITIS
     Dates: start: 20071028

REACTIONS (3)
  - RENAL FUNCTION TEST ABNORMAL [None]
  - BLOOD CREATININE ABNORMAL [None]
  - RENAL IMPAIRMENT [None]
